FAERS Safety Report 7220876-2 (Version None)
Quarter: 2011Q1

REPORT INFORMATION
  Report Type: 
  Country: None (occurrence: None)
  Receive Date: 20110112
  Receipt Date: 20110103
  Transmission Date: 20110831
  Serious: Yes (Hospitalization)
  Sender: FDA-Public Use
  Company Number: FR-JNJFOC-20100801867

PATIENT
  Sex: Male

DRUGS (6)
  1. NEUROFEN [Suspect]
     Indication: TOOTHACHE
     Route: 048
  2. AMOXICILLIN AND CLAVULANATE POTASSIUM [Suspect]
     Indication: TOOTHACHE
     Route: 048
  3. ALL OTHER THERAPEUTIC PRODUCTS [Suspect]
     Indication: ILL-DEFINED DISORDER
  4. DOLIPRANE [Suspect]
     Indication: TOOTHACHE
     Route: 048
  5. BI-PROFENID [Suspect]
     Indication: TOOTHACHE
     Route: 048
  6. ACETAMINOPHEN AND TRAMADOL HCL [Suspect]
     Indication: TOOTHACHE
     Route: 048

REACTIONS (3)
  - DERMATITIS BULLOUS [None]
  - HYPERTHERMIA [None]
  - TOXIC SKIN ERUPTION [None]
